FAERS Safety Report 7467931-X (Version None)
Quarter: 2011Q2

REPORT INFORMATION
  Report Type: 
  Country: None (occurrence: None)
  Receive Date: 20110509
  Receipt Date: 20100720
  Transmission Date: 20111010
  Serious: No
  Sender: FDA-Public Use
  Company Number: US-SANOFI-AVENTIS-200917845US

PATIENT
  Age: 30 Year
  Sex: Female

DRUGS (2)
  1. INSULIN [Suspect]
     Dosage: DOSE AS USED: UNK
     Route: 058
     Dates: start: 20090822, end: 20090822
  2. HUMULIN R [Concomitant]
     Dosage: DOSE AS USED: UNK

REACTIONS (5)
  - FATIGUE [None]
  - BLOOD GLUCOSE INCREASED [None]
  - HEADACHE [None]
  - HYPERHIDROSIS [None]
  - DRUG EXPOSURE DURING PREGNANCY [None]
